FAERS Safety Report 18479801 (Version 1)
Quarter: 2020Q4

REPORT INFORMATION
  Report Type: Spontaneous
  Country: TW (occurrence: TW)
  Receive Date: 20201109
  Receipt Date: 20201109
  Transmission Date: 20210114
  Serious: Yes (Hospitalization)
  Sender: FDA-Public Use
  Company Number: TW-ENDO PHARMACEUTICALS INC-2020-007087

PATIENT
  Age: 62 Year
  Sex: Female

DRUGS (2)
  1. RISPERIDONE. [Suspect]
     Active Substance: RISPERIDONE
     Indication: SCHIZOAFFECTIVE DISORDER
     Dosage: 3-6 MG/DAY, DAILY
     Route: 065
     Dates: start: 2011, end: 2014
  2. PALIPERIDONE. [Suspect]
     Active Substance: PALIPERIDONE
     Indication: SCHIZOAFFECTIVE DISORDER
     Dosage: 3 MG/DAY, DAILY
     Route: 065
     Dates: start: 2014

REACTIONS (1)
  - Pulmonary hypertension [Not Recovered/Not Resolved]
